FAERS Safety Report 9526433 (Version 1)
Quarter: 2013Q3

REPORT INFORMATION
  Report Type: Spontaneous
  Country: US (occurrence: US)
  Receive Date: 20130916
  Receipt Date: 20130916
  Transmission Date: 20140515
  Serious: Yes (Death, Life-Threatening, Hospitalization)
  Sender: FDA-Public Use
  Company Number: US-NAPPMUNDI-USA-2011-0064945

PATIENT
  Age: 48 Year
  Sex: Female

DRUGS (5)
  1. DILAUDID - HP INJECTION [Suspect]
     Indication: PAIN
  2. LORTAB /00607101/ [Suspect]
     Indication: BACK PAIN
     Route: 048
  3. METHADONE [Suspect]
     Indication: PRODUCT USED FOR UNKNOWN INDICATION
     Route: 048
  4. COCAINE [Suspect]
     Indication: PRODUCT USED FOR UNKNOWN INDICATION
  5. MARIJUANA [Suspect]
     Indication: PRODUCT USED FOR UNKNOWN INDICATION

REACTIONS (3)
  - Overdose [Fatal]
  - Coma [Fatal]
  - Unresponsive to stimuli [Fatal]
